FAERS Safety Report 6165138-X (Version None)
Quarter: 2009Q2

REPORT INFORMATION
  Report Type: 
  Country: None (occurrence: None)
  Receive Date: 20090423
  Receipt Date: 20090413
  Transmission Date: 20091009
  Serious: Yes (Hospitalization)
  Sender: FDA-Public Use
  Company Number: US-WYE-H08928609

PATIENT
  Sex: Female
  Weight: 59 kg

DRUGS (1)
  1. RAPAMUNE [Suspect]
     Dosage: UNSPECIFIED
     Dates: start: 20071205, end: 20090201

REACTIONS (1)
  - DYSPNOEA [None]
